FAERS Safety Report 23198005 (Version 3)
Quarter: 2024Q1

REPORT INFORMATION
  Report Type: Spontaneous
  Country: BR (occurrence: BR)
  Receive Date: 20231117
  Receipt Date: 20240129
  Transmission Date: 20240410
  Serious: Yes (Other)
  Sender: FDA-Public Use
  Company Number: BR-BAYER-2023A160087

PATIENT
  Age: 59 Year
  Sex: Male

DRUGS (3)
  1. NEXAVAR [Suspect]
     Active Substance: SORAFENIB
     Indication: Hepatic cancer metastatic
     Dosage: 800 MG DAILY (4 TABLETS A DAY)
     Dates: start: 202305
  2. NEXAVAR [Suspect]
     Active Substance: SORAFENIB
     Indication: Metastases to lung
     Dosage: 600 MG DAILY (TAKES 3 TABLETS A DAY)
  3. NEXAVAR [Suspect]
     Active Substance: SORAFENIB
     Indication: Hepatocellular carcinoma

REACTIONS (11)
  - Pain in extremity [Recovering/Resolving]
  - Metastases to lung [None]
  - Scab [None]
  - Burning sensation [None]
  - Skin exfoliation [None]
  - Skin disorder [None]
  - Diarrhoea [Not Recovered/Not Resolved]
  - Skin lesion [Recovering/Resolving]
  - Skin lesion [Recovering/Resolving]
  - Inflammation [None]
  - Gait disturbance [Recovering/Resolving]

NARRATIVE: CASE EVENT DATE: 20230601
